FAERS Safety Report 12851595 (Version 3)
Quarter: 2016Q4

REPORT INFORMATION
  Report Type: Spontaneous
  Country: NZ (occurrence: NZ)
  Receive Date: 20161016
  Receipt Date: 20161112
  Transmission Date: 20170207
  Serious: Yes (Death, Other)
  Sender: FDA-Public Use
  Company Number: NZ-BAXTER-2016BAX052200

PATIENT
  Age: 57 Year
  Sex: Female

DRUGS (9)
  1. ETOPOSIDE. [Suspect]
     Active Substance: ETOPOSIDE
     Indication: BONE MARROW CONDITIONING REGIMEN
     Route: 042
     Dates: start: 20160709, end: 20160712
  2. WATER FOR INJECTION [Suspect]
     Active Substance: WATER
     Dosage: WITH 540 MG IN CARMUSTINE, SINGLE DOSE
     Route: 042
     Dates: start: 20160708
  3. WATER FOR INJECTION [Suspect]
     Active Substance: WATER
     Indication: MEDICATION DILUTION
     Dosage: WITH 360 MG IN ETOPOSIDE PHOSPHATE
     Route: 042
     Dates: start: 20160709, end: 20160712
  4. GLUCOSE INJECTION, 5%, SOLUTION FOR INFUSION [Suspect]
     Active Substance: DEXTROSE
     Indication: MEDICATION DILUTION
     Dosage: WITH 540 MG CARMUSTINE, SINGLE DOSE
     Route: 042
     Dates: start: 20160708
  5. [PSS GPN] CARMUSTINE (BICNU OFFER) 1G [Suspect]
     Active Substance: CARMUSTINE
     Indication: BONE MARROW CONDITIONING REGIMEN
     Dosage: SINGLE DOSE
     Route: 042
     Dates: start: 20160708
  6. SODIUM CHLORIDE, 0.9%, SOLUTION FOR INFUSION [Suspect]
     Active Substance: SODIUM CHLORIDE
     Dosage: WITH 720 MG OF CYTARABINE
     Route: 042
     Dates: start: 20160709, end: 20160712
  7. MELPHALAN [Suspect]
     Active Substance: MELPHALAN
     Indication: BONE MARROW CONDITIONING REGIMEN
     Dosage: SINGLE DOSE
     Route: 042
     Dates: start: 20160713
  8. [PSS GPN] CYTARABINE [Suspect]
     Active Substance: CYTARABINE
     Indication: BONE MARROW CONDITIONING REGIMEN
     Dosage: 2 BAGS
     Route: 042
     Dates: start: 20160709, end: 20160712
  9. SODIUM CHLORIDE, 0.9%, SOLUTION FOR INFUSION [Suspect]
     Active Substance: SODIUM CHLORIDE
     Indication: MEDICATION DILUTION
     Dosage: WITH 360 MG OF ETOPOSIDE
     Route: 042
     Dates: start: 20160709, end: 20160712

REACTIONS (2)
  - Candida sepsis [Recovered/Resolved]
  - Death [Fatal]

NARRATIVE: CASE EVENT DATE: 20160720
